FAERS Safety Report 19694456 (Version 2)
Quarter: 2021Q4

REPORT INFORMATION
  Report Type: Spontaneous
  Country: CN (occurrence: CN)
  Receive Date: 20210813
  Receipt Date: 20211201
  Transmission Date: 20220303
  Serious: Yes (Other)
  Sender: FDA-Public Use
  Company Number: CN-SUN PHARMACEUTICAL INDUSTRIES LTD-2021R1-307316

PATIENT
  Age: 80 Year
  Sex: Male
  Weight: 42 kg

DRUGS (1)
  1. NOREPINEPHRINE [Suspect]
     Active Substance: NOREPINEPHRINE
     Indication: Hip arthroplasty
     Dosage: 8 MICROGRAM, QID
     Route: 042

REACTIONS (1)
  - Drug ineffective [Unknown]
